FAERS Safety Report 5151000-8 (Version None)
Quarter: 2006Q4

REPORT INFORMATION
  Report Type: 
  Country: None (occurrence: None)
  Receive Date: 20061108
  Receipt Date: 20061030
  Transmission Date: 20070319
  Serious: Yes (Other)
  Sender: FDA-Public Use
  Company Number: UKP06000263

PATIENT
  Age: 77 Year

DRUGS (3)
  1. DIDRONEL [Suspect]
     Indication: OSTEOPENIA
     Dosage: 1 TABLET, CYCLIC 1/D, ORAL
     Route: 048
     Dates: start: 20010301
  2. PREDNISOLONE [Concomitant]
  3. LANSOPRAZOLE [Concomitant]

REACTIONS (1)
  - TOOTH RESORPTION [None]
